FAERS Safety Report 16185057 (Version 1)
Quarter: 2019Q2

REPORT INFORMATION
  Report Type: Spontaneous
  Country: FR (occurrence: FR)
  Receive Date: 20190411
  Receipt Date: 20190411
  Transmission Date: 20190711
  Serious: Yes (Hospitalization)
  Sender: FDA-Public Use
  Company Number: FR-MYLANLABS-2019M1034174

PATIENT
  Age: 82 Year
  Sex: Female
  Weight: 57 kg

DRUGS (10)
  1. PROPRANOLOL [Concomitant]
     Active Substance: PROPRANOLOL HYDROCHLORIDE
     Dosage: 40 MILLIGRAM, QD
     Route: 048
  2. FLUVASTATIN [Concomitant]
     Active Substance: FLUVASTATIN SODIUM
     Dosage: 1 DOSAGE FORM, QD
     Route: 048
  3. TRAMADOL. [Suspect]
     Active Substance: TRAMADOL
     Indication: POST HERPETIC NEURALGIA
     Dosage: 100 MILLIGRAM, QD
     Route: 048
     Dates: start: 20180112, end: 20180210
  4. ZELITREX [Concomitant]
     Active Substance: VALACYCLOVIR HYDROCHLORIDE
     Dosage: UNK
     Route: 048
     Dates: start: 20180112, end: 20180119
  5. SIFROL [Concomitant]
     Active Substance: PRAMIPEXOLE
     Dosage: 1 DOSAGE FORM, QD
     Dates: start: 201712, end: 20180116
  6. SIFROL [Concomitant]
     Active Substance: PRAMIPEXOLE
     Dosage: 2 DOSAGE FORM, QD
     Route: 048
     Dates: start: 20180116
  7. IZALGI 500 MG/25 MG, G?LULE [Suspect]
     Active Substance: ACETAMINOPHEN\OPIUM
     Indication: POST HERPETIC NEURALGIA
     Dosage: 3 DOSAGE FORM, QD
     Route: 048
     Dates: start: 20180206, end: 20180210
  8. SIBELIUM                           /00505202/ [Concomitant]
     Active Substance: FLUNARIZINE
     Dosage: UNK
     Route: 048
     Dates: end: 20180116
  9. PARACETAMOL [Concomitant]
     Active Substance: ACETAMINOPHEN
     Dosage: UNK
     Route: 048
  10. TRAMADOL. [Concomitant]
     Active Substance: TRAMADOL
     Dosage: 100 MILLIGRAM, QD
     Route: 048
     Dates: end: 20180112

REACTIONS (2)
  - General physical health deterioration [Recovered/Resolved]
  - Confusional state [Recovered/Resolved]

NARRATIVE: CASE EVENT DATE: 20180210
